FAERS Safety Report 9293820 (Version 1)
Quarter: 2013Q2

REPORT INFORMATION
  Report Type: Spontaneous
  Country: IT (occurrence: IT)
  Receive Date: 20130516
  Receipt Date: 20130516
  Transmission Date: 20140414
  Serious: Yes (Hospitalization, Other)
  Sender: FDA-Public Use
  Company Number: PHHY2013IT047490

PATIENT
  Age: 75 Year
  Sex: Male

DRUGS (5)
  1. VANCOMYCIN [Suspect]
     Indication: ENDOCARDITIS
     Dosage: 1 G, BID
     Route: 042
  2. RIFAMPICIN [Suspect]
     Indication: ENDOCARDITIS
     Dosage: 300 MG, BID
     Route: 048
  3. GENTAMICIN [Suspect]
     Indication: ENDOCARDITIS
     Dosage: 1 MG/KG, TID
     Route: 042
  4. CEFTRIAXONE [Suspect]
     Indication: ENDOCARDITIS
     Dosage: 2 G, QD
  5. CUBICIN [Suspect]
     Indication: ENDOCARDITIS
     Dosage: 6 MG/KG, QD

REACTIONS (8)
  - Drug reaction with eosinophilia and systemic symptoms [Recovered/Resolved]
  - Pyrexia [Recovered/Resolved]
  - Inflammatory marker increased [Recovered/Resolved]
  - Rash erythematous [Recovered/Resolved]
  - Renal impairment [Recovered/Resolved]
  - Hepatic function abnormal [Recovered/Resolved]
  - Eosinophilia [Recovered/Resolved]
  - Endocarditis [Recovered/Resolved]
